FAERS Safety Report 9283801 (Version 1)
Quarter: 2013Q2

REPORT INFORMATION
  Report Type: Spontaneous
  Country: US (occurrence: US)
  Receive Date: 20130510
  Receipt Date: 20130510
  Transmission Date: 20140414
  Serious: Yes (Hospitalization, Other)
  Sender: FDA-Public Use
  Company Number: US-B.I. PHARMACEUTICALS,INC./RIDGEFIELD-2013-BI-12007BP

PATIENT
  Age: 60 Year
  Sex: Female
  Weight: 71.7 kg

DRUGS (9)
  1. MIRAPEX [Suspect]
     Route: 048
  2. AMPYRA [Suspect]
     Indication: MULTIPLE SCLEROSIS
     Dosage: 20 MG
     Route: 048
  3. EFFEXOR [Suspect]
  4. QUETIAPINE [Concomitant]
  5. DETROL [Concomitant]
  6. LORAZEPAM [Concomitant]
  7. BACLOFEN [Concomitant]
  8. TRICOR [Concomitant]
  9. HYDROCHLOROTHIAZIDE [Concomitant]

REACTIONS (7)
  - Emotional disorder [Recovered/Resolved]
  - Muscular weakness [Recovered/Resolved]
  - Asthenia [Recovered/Resolved]
  - Fall [Recovered/Resolved]
  - Bronchitis [Recovered/Resolved]
  - Confusional state [Recovered/Resolved]
  - Malaise [Recovered/Resolved]
